FAERS Safety Report 18979571 (Version 1)
Quarter: 2021Q1

REPORT INFORMATION
  Report Type: Other
  Country: GB (occurrence: GB)
  Receive Date: 20210308
  Receipt Date: 20210308
  Transmission Date: 20210420
  Serious: Yes (Hospitalization, Other)
  Sender: FDA-Public Use
  Company Number: GB-DEXPHARM-20210280

PATIENT
  Age: 39 Year
  Sex: Male

DRUGS (3)
  1. BONJELA [Suspect]
     Active Substance: CETALKONIUM CHLORIDE\CHOLINE SALICYLATE\MENTHOL
     Indication: MOUTH ULCERATION
  2. ASPIRIN. [Suspect]
     Active Substance: ASPIRIN
  3. OMEPRAZOLE. [Suspect]
     Active Substance: OMEPRAZOLE
     Indication: GASTRIC ULCER

REACTIONS (4)
  - Drug ineffective [Recovered/Resolved]
  - Duodenal ulcer [Recovered/Resolved]
  - Gastric ulcer [Recovered/Resolved]
  - Drug interaction [Recovered/Resolved]
